FAERS Safety Report 5795020-9 (Version None)
Quarter: 2008Q2

REPORT INFORMATION
  Report Type: 
  Country: None (occurrence: None)
  Receive Date: 20080630
  Receipt Date: 20080307
  Transmission Date: 20081010
  Serious: No
  Sender: FDA-Public Use
  Company Number: US-BRISTOL-MYERS SQUIBB COMPANY-14105993

PATIENT
  Age: 72 Year
  Sex: Female
  Weight: 54 kg

DRUGS (4)
  1. ORENCIA [Suspect]
     Indication: RHEUMATOID ARTHRITIS
     Dates: start: 20071001
  2. FOSAMAX [Concomitant]
  3. CALCIUM [Concomitant]
  4. PREDNISONE [Concomitant]

REACTIONS (3)
  - ALOPECIA [None]
  - BLOOD GLUCOSE INCREASED [None]
  - DRUG INEFFECTIVE [None]
